FAERS Safety Report 24010682 (Version 1)
Quarter: 2024Q2

REPORT INFORMATION
  Report Type: Spontaneous
  Country: US (occurrence: US)
  Receive Date: 20240625
  Receipt Date: 20240625
  Transmission Date: 20240716
  Serious: No
  Sender: FDA-Public Use
  Company Number: US-AMRYT PHARMACEUTICALS DAC-AEGR007173

PATIENT
  Sex: Male
  Weight: 21.397 kg

DRUGS (2)
  1. FILSUVEZ [Suspect]
     Active Substance: BIRCH TRITERPENES
     Indication: Epidermolysis bullosa
     Dosage: APPLY A 1 MM LAYER TO AFFECTED WOUND SURFACE(S) AT EACH DRESSING CHANGE UNTIL WOUND IS HEALED - 10 P
     Route: 061
     Dates: start: 20240507, end: 202405
  2. FILSUVEZ [Suspect]
     Active Substance: BIRCH TRITERPENES
     Dosage: APPLY A 1 MM LAYER TO AFFECTED WOUND SURFACE(S) AT EACH DRESSING CHANGE UNTIL WOUND IS HEALED - 10 P
     Route: 061
     Dates: start: 202405

REACTIONS (6)
  - Excessive granulation tissue [Not Recovered/Not Resolved]
  - Application site pain [Not Recovered/Not Resolved]
  - Wound complication [Not Recovered/Not Resolved]
  - Product colour issue [Not Recovered/Not Resolved]
  - Product use complaint [Recovering/Resolving]
  - Intentional product misuse [Not Recovered/Not Resolved]
